FAERS Safety Report 8900739 (Version 1)
Quarter: 2012Q4

REPORT INFORMATION
  Report Type: 
  Country: US (occurrence: US)
  Receive Date: 20121109
  Receipt Date: 20121109
  Transmission Date: 20130627
  Serious: Yes (Hospitalization)
  Sender: FDA-Public Use
  Company Number: US-MYLANLABS-2012S1022538

PATIENT
  Age: 81 Year
  Sex: Female

DRUGS (7)
  1. GLIBENCLAMIDE [Suspect]
     Indication: TYPE 2 DIABETES MELLITUS
     Route: 065
  2. METFORMIN [Concomitant]
     Indication: TYPE 2 DIABETES MELLITUS
     Route: 065
  3. HYDROCHLOROTHIAZIDE [Concomitant]
     Dosage: 25mg daily
     Route: 065
  4. ATORVASTATIN [Concomitant]
     Dosage: 10mg daily
     Route: 065
  5. CARVEDILOL [Concomitant]
     Route: 065
  6. FLUOXETINE [Concomitant]
     Dosage: 20mg daily
     Route: 065
  7. CLOPIDOGREL [Concomitant]
     Dosage: 75mg daily
     Route: 065

REACTIONS (3)
  - Hypoglycaemia [Recovering/Resolving]
  - Fall [Unknown]
  - Hip fracture [Recovered/Resolved]
